FAERS Safety Report 18601390 (Version 1)
Quarter: 2020Q4

REPORT INFORMATION
  Report Type: Report from Study
  Country: US (occurrence: US)
  Receive Date: 20201210
  Receipt Date: 20201210
  Transmission Date: 20210114
  Serious: Yes (Life-Threatening, Hospitalization, Other)
  Sender: FDA-Public Use
  Company Number: US-BRISTOL-MYERS SQUIBB COMPANY-BMS-2020-105338

PATIENT
  Age: 80 Year
  Sex: Female
  Weight: 62.9 kg

DRUGS (3)
  1. NIVOLUMAB [Suspect]
     Active Substance: NIVOLUMAB
     Indication: PAPILLARY THYROID CANCER
     Dosage: 158 MILLILITER, Q4WK
     Route: 041
     Dates: start: 20201112, end: 20201112
  2. ENCORAFENIB [Suspect]
     Active Substance: ENCORAFENIB
     Indication: PAPILLARY THYROID CANCER
     Dosage: UNK
     Route: 065
     Dates: start: 20201112
  3. BINIMETINIB [Suspect]
     Active Substance: BINIMETINIB
     Indication: PAPILLARY THYROID CANCER
     Dosage: UNK
     Route: 065
     Dates: start: 20201112

REACTIONS (1)
  - Immune-mediated hepatitis [Not Recovered/Not Resolved]

NARRATIVE: CASE EVENT DATE: 20201204
